FAERS Safety Report 9056783 (Version 1)
Quarter: 2013Q1

REPORT INFORMATION
  Report Type: Spontaneous
  Country: FR (occurrence: FR)
  Receive Date: 20130201
  Receipt Date: 20130201
  Transmission Date: 20140127
  Serious: Yes (Hospitalization)
  Sender: FDA-Public Use
  Company Number: FR-COVIDIEN/TYCO HEALTHCARE/MALLINCKRODT-T201300339

PATIENT
  Age: 67 None
  Sex: Female

DRUGS (5)
  1. OPTIRAY 350 [Suspect]
     Indication: ANGIOGRAM CEREBRAL
     Dosage: 1 DF, SINGLE
     Route: 040
     Dates: start: 20121010, end: 20121010
  2. CELESTENE [Suspect]
     Indication: PREMEDICATION
     Dosage: 1 DF, UNK
     Route: 040
     Dates: start: 20121010, end: 20121010
  3. CELESTAMINE                        /00252801/ [Concomitant]
     Indication: PREMEDICATION
     Dosage: UNK
     Route: 065
     Dates: start: 20121009
  4. ATARAX                             /00058401/ [Concomitant]
     Indication: PREMEDICATION
     Dosage: UNK
     Dates: start: 20121009
  5. EXACYL [Concomitant]
     Indication: PREMEDICATION
     Dosage: UNK
     Route: 065
     Dates: start: 20121009

REACTIONS (1)
  - Acute generalised exanthematous pustulosis [Recovered/Resolved]
